FAERS Safety Report 17305430 (Version 2)
Quarter: 2020Q1

REPORT INFORMATION
  Report Type: Report from Study
  Country: IE (occurrence: IE)
  Receive Date: 20200123
  Receipt Date: 20200319
  Transmission Date: 20200409
  Serious: Yes (Hospitalization)
  Sender: FDA-Public Use
  Company Number: IE-ASTRAZENECA-2020SE00176

PATIENT
  Age: 286 Day
  Sex: Female

DRUGS (7)
  1. SYNAGIS [Suspect]
     Active Substance: PALIVIZUMAB
     Indication: SKELETAL DYSPLASIA
     Route: 030
     Dates: start: 20191120, end: 2019
  2. SYNAGIS [Suspect]
     Active Substance: PALIVIZUMAB
     Indication: SKELETAL DYSPLASIA
     Route: 030
     Dates: start: 20200212
  3. SYNAGIS [Suspect]
     Active Substance: PALIVIZUMAB
     Indication: SKELETAL DYSPLASIA
     Route: 030
     Dates: start: 20191023, end: 20191023
  4. AZITHROMYCIN ANHYDROUS. [Concomitant]
     Active Substance: AZITHROMYCIN ANHYDROUS
     Indication: PRODUCT USED FOR UNKNOWN INDICATION
     Dosage: M/W/F
     Route: 050
  5. VENTOLIN [Concomitant]
     Active Substance: ALBUTEROL SULFATE
     Indication: PRODUCT USED FOR UNKNOWN INDICATION
     Route: 050
  6. SYNAGIS [Suspect]
     Active Substance: PALIVIZUMAB
     Indication: SKELETAL DYSPLASIA
     Route: 030
     Dates: start: 20191218, end: 20191218
  7. ZITHROMAX [Concomitant]
     Active Substance: AZITHROMYCIN DIHYDRATE
     Indication: PRODUCT USED FOR UNKNOWN INDICATION
     Route: 050

REACTIONS (3)
  - Lower respiratory tract infection [Recovered/Resolved]
  - Respiratory syncytial virus infection [Recovered/Resolved]
  - Product use in unapproved indication [Unknown]

NARRATIVE: CASE EVENT DATE: 20191023
